FAERS Safety Report 19770100 (Version 1)
Quarter: 2021Q3

REPORT INFORMATION
  Report Type: Spontaneous
  Country: US (occurrence: US)
  Receive Date: 20210831
  Receipt Date: 20210831
  Transmission Date: 20211014
  Serious: Yes (Hospitalization)
  Sender: FDA-Public Use
  Company Number: None

PATIENT
  Age: 50 Year
  Sex: Female
  Weight: 90.72 kg

DRUGS (1)
  1. REGEN?COV [Suspect]
     Active Substance: CASIRIVIMAB\IMDEVIMAB

REACTIONS (7)
  - Cough [None]
  - Chest discomfort [None]
  - Headache [None]
  - Nausea [None]
  - Pallor [None]
  - Dysphonia [None]
  - Blood potassium decreased [None]

NARRATIVE: CASE EVENT DATE: 20210827
